FAERS Safety Report 19204420 (Version 1)
Quarter: 2021Q2

REPORT INFORMATION
  Report Type: Other
  Country: FR (occurrence: FR)
  Receive Date: 20210503
  Receipt Date: 20210503
  Transmission Date: 20210717
  Serious: Yes (Hospitalization, Other)
  Sender: FDA-Public Use
  Company Number: FR-DEXPHARM-20210553

PATIENT
  Age: 38 Year
  Sex: Female

DRUGS (5)
  1. VENLAFAXINE [Suspect]
     Active Substance: VENLAFAXINE HYDROCHLORIDE
  2. ZOPICLONE [Suspect]
     Active Substance: ZOPICLONE
  3. QUETIAPINE. [Suspect]
     Active Substance: QUETIAPINE
  4. BROMAZEPAM [Suspect]
     Active Substance: BROMAZEPAM
  5. FLUMAZENIL. [Suspect]
     Active Substance: FLUMAZENIL

REACTIONS (4)
  - Cardiotoxicity [Recovered/Resolved]
  - Generalised tonic-clonic seizure [Recovered/Resolved]
  - Drug interaction [Recovered/Resolved]
  - Overdose [Recovered/Resolved]
